FAERS Safety Report 22614944 (Version 1)
Quarter: 2023Q2

REPORT INFORMATION
  Report Type: Spontaneous
  Country: TW (occurrence: TW)
  Receive Date: 20230619
  Receipt Date: 20230619
  Transmission Date: 20230722
  Serious: Yes (Other)
  Sender: FDA-Public Use
  Company Number: TW-PFIZER INC-PV202300103810

PATIENT
  Age: 55 Year
  Sex: Female

DRUGS (4)
  1. ENBREL [Suspect]
     Active Substance: ETANERCEPT
     Indication: Rheumatoid arthritis
     Dosage: 50 MG, WEEKLY
     Route: 065
     Dates: start: 2015, end: 20230612
  2. METHOTREXATE [Concomitant]
     Active Substance: METHOTREXATE
     Dosage: 12.5MG 5 TABLETS QW
  3. ETORICOXIB [Concomitant]
     Active Substance: ETORICOXIB
     Dosage: 60MG 1 TABLET QD
  4. FOLIC ACID [Concomitant]
     Active Substance: FOLIC ACID
     Dosage: 5MG 1 TABLET QD

REACTIONS (3)
  - Road traffic accident [Unknown]
  - Concussion [Unknown]
  - Skin abrasion [Unknown]

NARRATIVE: CASE EVENT DATE: 20230612
